FAERS Safety Report 24212057 (Version 2)
Quarter: 2024Q3

REPORT INFORMATION
  Report Type: Spontaneous
  Country: US (occurrence: US)
  Receive Date: 20240815
  Receipt Date: 20240912
  Transmission Date: 20241017
  Serious: Yes (Other)
  Sender: BIOGEN
  Company Number: US-BIOGEN-2024BI01278069

PATIENT
  Sex: Female

DRUGS (1)
  1. VUMERITY [Suspect]
     Active Substance: DIROXIMEL FUMARATE
     Indication: Multiple sclerosis
     Route: 050
     Dates: start: 20230728

REACTIONS (1)
  - Back disorder [Unknown]
